FAERS Safety Report 20826483 (Version 1)
Quarter: 2022Q2

REPORT INFORMATION
  Report Type: Spontaneous
  Country: US (occurrence: US)
  Receive Date: 20220513
  Receipt Date: 20220513
  Transmission Date: 20220721
  Serious: No
  Sender: FDA-Public Use
  Company Number: US-PFIZER INC-202200688261

PATIENT
  Age: 40 Year
  Sex: Male

DRUGS (4)
  1. PAXLOVID [Suspect]
     Active Substance: NIRMATRELVIR\RITONAVIR
     Indication: COVID-19 treatment
     Dosage: UNK
     Dates: start: 20220429, end: 20220504
  2. CARVEDILOL [Concomitant]
     Active Substance: CARVEDILOL
     Dosage: UNK
  3. ZOLOFT [Concomitant]
     Active Substance: SERTRALINE HYDROCHLORIDE
     Dosage: UNK
  4. ASPIRIN [Concomitant]
     Active Substance: ASPIRIN
     Dosage: UNK

REACTIONS (5)
  - Suspected COVID-19 [Not Recovered/Not Resolved]
  - Chest pain [Not Recovered/Not Resolved]
  - Odynophagia [Not Recovered/Not Resolved]
  - Pyrexia [Not Recovered/Not Resolved]
  - Pain [Not Recovered/Not Resolved]

NARRATIVE: CASE EVENT DATE: 20220508
